FAERS Safety Report 19843182 (Version 2)
Quarter: 2021Q3

REPORT INFORMATION
  Report Type: Spontaneous
  Country: US (occurrence: US)
  Receive Date: 20210917
  Receipt Date: 20210921
  Transmission Date: 20211014
  Serious: No
  Sender: FDA-Public Use
  Company Number: US-ELI_LILLY_AND_COMPANY-US202109005671

PATIENT
  Sex: Male

DRUGS (1)
  1. REYVOW [Suspect]
     Active Substance: LASMIDITAN
     Indication: PRODUCT USED FOR UNKNOWN INDICATION
     Dosage: UNK UNK, UNKNOWN
     Route: 065

REACTIONS (8)
  - Asthenia [Unknown]
  - Dizziness [Unknown]
  - Tremor [Unknown]
  - Feeling jittery [Unknown]
  - Euphoric mood [Unknown]
  - Gait disturbance [Unknown]
  - Blood pressure increased [Unknown]
  - Feeling abnormal [Unknown]
